FAERS Safety Report 23680058 (Version 2)
Quarter: 2024Q2

REPORT INFORMATION
  Report Type: Spontaneous
  Country: US (occurrence: US)
  Receive Date: 20240327
  Receipt Date: 20240402
  Transmission Date: 20240716
  Serious: No
  Sender: FDA-Public Use
  Company Number: US-SANDOZ-SDZ2024US032360

PATIENT
  Sex: Female

DRUGS (1)
  1. DORZOLAMIDE HYDROCHLORIDE [Suspect]
     Active Substance: DORZOLAMIDE HYDROCHLORIDE
     Indication: Product used for unknown indication
     Dosage: 10ML LDP, TID
     Route: 065
     Dates: start: 20240316

REACTIONS (4)
  - Eye irritation [Unknown]
  - Burning sensation [Unknown]
  - Skin burning sensation [Unknown]
  - Blood pressure abnormal [Unknown]
